FAERS Safety Report 5998011-8 (Version None)
Quarter: 2008Q4

REPORT INFORMATION
  Report Type: 
  Country: None (occurrence: None)
  Receive Date: 20081211
  Receipt Date: 20081125
  Transmission Date: 20090506
  Serious: Yes (Hospitalization)
  Sender: FDA-Public Use
  Company Number: KV200800551

PATIENT
  Age: 47 Year
  Sex: Male
  Weight: 75.7 kg

DRUGS (2)
  1. ISOSORBIDE MONONITRATE [Suspect]
     Indication: CARDIAC DISORDER
     Dosage: 1 TABLET, BID, ORAL
     Route: 048
     Dates: start: 20080601, end: 20080801
  2. PLAVIX	/01220701/ (CLOPIDOGREL) [Concomitant]

REACTIONS (5)
  - ASTHENIA [None]
  - DIZZINESS [None]
  - MYOCARDIAL INFARCTION [None]
  - PRODUCT QUALITY ISSUE [None]
  - RASH [None]
